FAERS Safety Report 24986031 (Version 2)
Quarter: 2025Q3

REPORT INFORMATION
  Report Type: Report from Study
  Country: US (occurrence: None)
  Receive Date: 20250219
  Receipt Date: 20250810
  Transmission Date: 20251021
  Serious: Yes (Hospitalization, Other)
  Sender: ALEXION PHARMACEUTICALS
  Company Number: US-AstraZeneca-2015SE40658

PATIENT
  Sex: Female

DRUGS (10)
  1. NEXIUM [Suspect]
     Active Substance: ESOMEPRAZOLE MAGNESIUM
     Indication: Gastrointestinal disorder
  2. NEXIUM [Suspect]
     Active Substance: ESOMEPRAZOLE MAGNESIUM
     Indication: Gastrooesophageal reflux disease
     Dosage: 40 MILLIGRAM, QD
  3. NEXIUM [Suspect]
     Active Substance: ESOMEPRAZOLE MAGNESIUM
     Dosage: 40 MILLIGRAM, BID
  4. ALPRAZOLAM [Concomitant]
     Active Substance: ALPRAZOLAM
     Indication: Anxiety
  5. CLARITIN [Concomitant]
     Active Substance: LORATADINE
     Indication: Multiple allergies
  6. FLUTICASONE [Concomitant]
     Active Substance: FLUTICASONE
     Indication: Dyspnoea
  7. FLUTICASONE [Concomitant]
     Active Substance: FLUTICASONE
     Indication: Asthma
  8. GABAPENTIN [Concomitant]
     Active Substance: GABAPENTIN
     Indication: Neck pain
  9. HYDROCHLOROTHIAZIDE [Concomitant]
     Active Substance: HYDROCHLOROTHIAZIDE
     Indication: Tinnitus
     Dosage: 12.5 MILLIGRAM, QD
  10. QUINAPRIL HYDROCHLORIDE [Concomitant]
     Active Substance: QUINAPRIL HYDROCHLORIDE
     Indication: Hypertension

REACTIONS (23)
  - Malaise [Not Recovered/Not Resolved]
  - Abdominal pain upper [Unknown]
  - Regurgitation [Not Recovered/Not Resolved]
  - Osteoporosis [Unknown]
  - Asthenia [Unknown]
  - Abdominal discomfort [Unknown]
  - Vomiting [Unknown]
  - Infection [Unknown]
  - Skin discolouration [Unknown]
  - Dyspnoea [Unknown]
  - Productive cough [Unknown]
  - Feeling abnormal [Unknown]
  - Tinnitus [Unknown]
  - Musculoskeletal discomfort [Unknown]
  - Musculoskeletal discomfort [Unknown]
  - Intervertebral disc protrusion [Unknown]
  - Arthritis [Unknown]
  - Hypertension [Unknown]
  - Body height decreased [Unknown]
  - Weight decreased [Unknown]
  - Hypophagia [Unknown]
  - Product dose omission issue [Unknown]
  - Intentional product misuse [Unknown]
